FAERS Safety Report 10869855 (Version 1)
Quarter: 2015Q1

REPORT INFORMATION
  Report Type: Spontaneous
  Country: US (occurrence: None)
  Receive Date: 20150219
  Receipt Date: 20150219
  Transmission Date: 20150721
  Serious: Yes (Death)
  Sender: FDA-Public Use
  Company Number: US-ZYDUS-006578

PATIENT
  Age: 58 Year
  Sex: Male

DRUGS (5)
  1. DULOXETINE (DULOXETINE) [Suspect]
     Active Substance: DULOXETINE
  2. HYDROXYZINE (HYDROXYZINE) [Suspect]
     Active Substance: HYDROXYZINE HYDROCHLORIDE
  3. TRAMADOL [Suspect]
     Active Substance: TRAMADOL
  4. MIRTAZAPINE (MIRTAZAPINE) [Suspect]
     Active Substance: MIRTAZAPINE
  5. GABAPENTINE [Suspect]
     Active Substance: GABAPENTIN

REACTIONS (7)
  - Toxicity to various agents [None]
  - Pulmonary congestion [None]
  - Oedema [None]
  - Cardiomegaly [None]
  - Hepatic steatosis [None]
  - Accidental overdose [None]
  - Exposure via ingestion [None]
